FAERS Safety Report 4603148-1 (Version None)
Quarter: 2005Q1

REPORT INFORMATION
  Report Type: 
  Country: None (occurrence: None)
  Receive Date: 20050307
  Receipt Date: 20051017
  Transmission Date: 20050727
  Serious: Yes (Hospitalization)
  Sender: FDA-Public Use
  Company Number: A02200302657

PATIENT
  Age: 65 Year
  Sex: Male

DRUGS (1)
  1. DANAZOL [Suspect]
     Indication: REFRACTORY ANAEMIA WITH AN EXCESS OF BLASTS
     Dosage: 600 MG QD; ORAL
     Route: 048
     Dates: start: 20030415, end: 20030815

REACTIONS (3)
  - ALVEOLITIS ALLERGIC [None]
  - HYPOXIA [None]
  - PULMONARY TOXICITY [None]
